FAERS Safety Report 21903523 (Version 1)
Quarter: 2023Q1

REPORT INFORMATION
  Report Type: Spontaneous
  Country: US (occurrence: US)
  Receive Date: 20230124
  Receipt Date: 20230124
  Transmission Date: 20230417
  Serious: Yes (Life-Threatening, Hospitalization)
  Sender: FDA-Public Use
  Company Number: US-MYLANLABS-2023M1007830

PATIENT
  Age: 57 Year
  Sex: Female

DRUGS (2)
  1. BACLOFEN [Suspect]
     Active Substance: BACLOFEN
     Indication: Muscle spasms
     Dosage: UNK
     Route: 065
  2. BACLOFEN [Suspect]
     Active Substance: BACLOFEN
     Dosage: BACLOFEN WAS RESUMED
     Route: 065

REACTIONS (7)
  - Shock [Recovering/Resolving]
  - Mental status changes [Recovering/Resolving]
  - Respiratory failure [Recovering/Resolving]
  - Lethargy [Recovering/Resolving]
  - Seizure [Recovering/Resolving]
  - Toxicity to various agents [Recovering/Resolving]
  - Overdose [Recovering/Resolving]
